FAERS Safety Report 6443915-5 (Version None)
Quarter: 2009Q4

REPORT INFORMATION
  Report Type: 
  Country: None (occurrence: None)
  Receive Date: 20091113
  Receipt Date: 20091030
  Transmission Date: 20100525
  Serious: Yes (Other)
  Sender: FDA-Public Use
  Company Number: 1000007097

PATIENT
  Sex: Female
  Weight: 60 kg

DRUGS (8)
  1. LEXAPRO [Suspect]
     Indication: ANXIETY
     Dosage: 0.2 ML (0.2 ML,1 IN 1 D),ORAL
     Route: 048
     Dates: start: 20090508, end: 20090511
  2. LEXAPRO [Suspect]
     Indication: DEPRESSION
     Dosage: 0.2 ML (0.2 ML,1 IN 1 D),ORAL
     Route: 048
     Dates: start: 20090508, end: 20090511
  3. OXAZEPAM [Concomitant]
  4. TEMAZEPAM [Concomitant]
  5. ACETAMINOPHEN W/ CODEINE [Concomitant]
  6. ONDSANSETRON (TABLETS) [Concomitant]
  7. ESOEMPRAZOLE (TABLETS) [Concomitant]
  8. ALPRAZOLAM [Concomitant]

REACTIONS (3)
  - MUSCLE SPASMS [None]
  - NAUSEA [None]
  - VOMITING [None]
